FAERS Safety Report 7705826-4 (Version None)
Quarter: 2011Q3

REPORT INFORMATION
  Report Type: 
  Country: None (occurrence: None)
  Receive Date: 20110824
  Receipt Date: 20110812
  Transmission Date: 20111222
  Serious: Yes (Life-Threatening, Hospitalization)
  Sender: FDA-Public Use
  Company Number: GB-ELI_LILLY_AND_COMPANY-GB201108001109

PATIENT
  Age: 44 Year
  Sex: Male

DRUGS (3)
  1. BISOPROLOL FUMARATE [Concomitant]
  2. ACETAMINOPHEN [Concomitant]
  3. OLANZAPINE [Suspect]
     Dosage: UNK, UNKNOWN

REACTIONS (11)
  - INTENTIONAL OVERDOSE [None]
  - BRADYCARDIA [None]
  - FALL [None]
  - COMA [None]
  - SEPSIS [None]
  - LIVER DISORDER [None]
  - ASPERGILLOMA [None]
  - METABOLIC DISORDER [None]
  - SUICIDE ATTEMPT [None]
  - PNEUMONIA [None]
  - CACHEXIA [None]
